FAERS Safety Report 19527276 (Version 1)
Quarter: 2021Q3

REPORT INFORMATION
  Report Type: Spontaneous
  Country: US (occurrence: US)
  Receive Date: 20210713
  Receipt Date: 20210713
  Transmission Date: 20211014
  Serious: Yes (Hospitalization)
  Sender: FDA-Public Use
  Company Number: None

PATIENT
  Sex: Male

DRUGS (9)
  1. VITAMIN D3 [Concomitant]
     Active Substance: CHOLECALCIFEROL
     Dates: start: 20200914
  2. DULCOLAX NOS [Concomitant]
     Active Substance: BISACODYL OR DOCUSATE SODIUM
     Dates: start: 20200914
  3. CRANBERRY. [Concomitant]
     Active Substance: CRANBERRY
     Dates: start: 20200914
  4. MAGNESIUM [Concomitant]
     Active Substance: MAGNESIUM
     Dates: start: 20200914
  5. CALCIUM [Concomitant]
     Active Substance: CALCIUM
     Dates: start: 20200914
  6. MULTIVITAMIN [Concomitant]
     Active Substance: VITAMINS
     Dates: start: 20200914
  7. FIBER [Concomitant]
     Active Substance: PSYLLIUM HUSK
     Dates: start: 20200914
  8. GLATIRAMER [Suspect]
     Active Substance: GLATIRAMER
     Indication: MULTIPLE SCLEROSIS
     Dosage: ?          OTHER FREQUENCY:MON WED FRI;?
     Route: 058
     Dates: start: 20190116
  9. IPRATROPIUM [Concomitant]
     Active Substance: IPRATROPIUM
     Dates: start: 20210402

REACTIONS (1)
  - Hospitalisation [None]
